FAERS Safety Report 5797286-8 (Version None)
Quarter: 2008Q2

REPORT INFORMATION
  Report Type: 
  Country: None (occurrence: None)
  Receive Date: 20080627
  Receipt Date: 20080624
  Transmission Date: 20081010
  Serious: Yes (Death, Hospitalization)
  Sender: FDA-Public Use
  Company Number: 2008-177540-NL

PATIENT
  Age: 60 Year
  Sex: Male

DRUGS (5)
  1. MIRTAZAPINE [Suspect]
     Dosage: 15 MG QD ORAL
     Route: 048
     Dates: start: 20080128, end: 20080306
  2. TASIGNA (NILOTINIB) [Suspect]
     Indication: CHRONIC MYELOID LEUKAEMIA
     Dosage: 400 MG/600 MG ORAL
     Route: 048
     Dates: start: 20070606, end: 20080114
  3. TASIGNA (NILOTINIB) [Suspect]
     Indication: CHRONIC MYELOID LEUKAEMIA
     Dosage: 400 MG/600 MG ORAL
     Route: 048
     Dates: start: 20080118, end: 20080127
  4. TASIGNA (NILOTINIB) [Suspect]
     Indication: CHRONIC MYELOID LEUKAEMIA
     Dosage: 400 MG/600 MG ORAL
     Route: 048
     Dates: start: 20080128, end: 20080306
  5. LOPERAMIDE HYDROCHLORIDE [Concomitant]

REACTIONS (22)
  - ANXIETY [None]
  - ARTERIAL STENOSIS [None]
  - ARTERIOSCLEROSIS CORONARY ARTERY [None]
  - ASTHENIA [None]
  - BRONCHOPNEUMONIA [None]
  - CARDIAC ARREST [None]
  - CARDIAC FAILURE [None]
  - CARDIAC HYPERTROPHY [None]
  - CARDIOVASCULAR DISORDER [None]
  - CARDIOVASCULAR INSUFFICIENCY [None]
  - CONDUCTION DISORDER [None]
  - CORONARY ARTERY STENOSIS [None]
  - DRUG INTERACTION [None]
  - DYSPEPSIA [None]
  - LOSS OF CONSCIOUSNESS [None]
  - MULTI-ORGAN FAILURE [None]
  - MYOCARDIAL INFARCTION [None]
  - PLEURAL EFFUSION [None]
  - PULMONARY OEDEMA [None]
  - PYREXIA [None]
  - RENAL DISORDER [None]
  - VENTRICULAR FIBRILLATION [None]
